FAERS Safety Report 18039244 (Version 2)
Quarter: 2020Q3

REPORT INFORMATION
  Report Type: Spontaneous
  Country: US (occurrence: US)
  Receive Date: 20200718
  Receipt Date: 20200720
  Transmission Date: 20201103
  Serious: Yes (Other)
  Sender: FDA-Public Use
  Company Number: US-SHIRE-US202022941

PATIENT
  Sex: Male

DRUGS (1)
  1. ADDERALL XR [Suspect]
     Active Substance: AMPHETAMINE ASPARTATE\AMPHETAMINE SULFATE\DEXTROAMPHETAMINE SACCHARATE\DEXTROAMPHETAMINE SULFATE
     Indication: ATTENTION DEFICIT HYPERACTIVITY DISORDER
     Dosage: 90 MILLIGRAM, 1X/DAY:QD
     Route: 065

REACTIONS (4)
  - Prescribed overdose [Unknown]
  - Disability [Not Recovered/Not Resolved]
  - Hallucination [Recovered/Resolved]
  - Drug dependence [Not Recovered/Not Resolved]
